FAERS Safety Report 7526168-6 (Version None)
Quarter: 2011Q2

REPORT INFORMATION
  Report Type: 
  Country: None (occurrence: None)
  Receive Date: 20110603
  Receipt Date: 20110603
  Transmission Date: 20111010
  Serious: Yes (Hospitalization)
  Sender: FDA-Public Use
  Company Number: None

PATIENT
  Age: 81 Year
  Sex: Female

DRUGS (1)
  1. BACTRIM DS [Suspect]
     Indication: URINARY TRACT INFECTION
     Dosage: 1 TAB BID PO
     Route: 048

REACTIONS (4)
  - NAUSEA [None]
  - VOMITING [None]
  - HYPOVOLAEMIA [None]
  - HYPONATRAEMIA [None]
